FAERS Safety Report 8832115 (Version 1)
Quarter: 2012Q4

REPORT INFORMATION
  Report Type: Report from Study
  Country: JP (occurrence: JP)
  Receive Date: 20121009
  Receipt Date: 20121009
  Transmission Date: 20130627
  Serious: Yes (Hospitalization, Other)
  Sender: FDA-Public Use
  Company Number: JP-VERTEX PHARMACEUTICAL INC.-AE-2012-005295

PATIENT
  Age: 36 Year
  Sex: Female

DRUGS (12)
  1. VX-950 [Suspect]
     Indication: HEPATITIS C
     Dosage: 1500 mg, UNK
     Route: 048
     Dates: start: 20120113, end: 20120406
  2. RIBAVIRIN [Suspect]
     Indication: HEPATITIS C
     Route: 048
     Dates: start: 20120113, end: 20120301
  3. RIBAVIRIN [Suspect]
     Dosage: 400 mg, qd
     Route: 048
     Dates: start: 20120302, end: 20120315
  4. RIBAVIRIN [Suspect]
     Dosage: 200 mg, qd
     Route: 048
     Dates: start: 20120316, end: 20120319
  5. RIBAVIRIN [Suspect]
     Dosage: 200 mg twice on monday + friday
     Route: 048
     Dates: start: 20120330, end: 20120405
  6. RIBAVIRIN [Suspect]
     Dosage: 200 mg, qod
     Route: 048
     Dates: start: 20120406, end: 20120419
  7. RIBAVIRIN [Suspect]
     Dosage: 200 mg, UNK
     Route: 048
     Dates: start: 20120420, end: 20120426
  8. RIBAVIRIN [Suspect]
     Dosage: 400 mg, qd
     Route: 048
     Dates: start: 20120427, end: 20120614
  9. RIBAVIRIN [Suspect]
     Dosage: 600 mg, UNK
     Route: 048
     Dates: start: 20120615, end: 20120629
  10. PEGINTERFERON ALFA-2B [Suspect]
     Indication: HEPATITIS C
     Dosage: 1.5 UNK, qw
     Route: 058
     Dates: start: 20120113, end: 20120629
  11. HIRUDOID                           /00723701/ [Concomitant]
     Route: 061
     Dates: start: 20120113, end: 20120413
  12. LOXONIN [Concomitant]
     Route: 048
     Dates: start: 20120113, end: 20120123

REACTIONS (3)
  - White blood cell count decreased [Recovered/Resolved]
  - Orthostatic hypotension [Recovered/Resolved]
  - Haemoglobin decreased [Not Recovered/Not Resolved]
